FAERS Safety Report 14479495 (Version 3)
Quarter: 2018Q2

REPORT INFORMATION
  Report Type: Spontaneous
  Country: DE (occurrence: DE)
  Receive Date: 20180202
  Receipt Date: 20180621
  Transmission Date: 20180711
  Serious: Yes (Hospitalization)
  Sender: FDA-Public Use
  Company Number: DE-AUROBINDO-AUR-APL-2018-004030

PATIENT

DRUGS (6)
  1. ENABETA COMP [Suspect]
     Active Substance: ENALAPRIL MALEATE\HYDROCHLOROTHIAZIDE
     Dosage: 1 DF, QD, FOR AT LEAST 20 YEARS
     Route: 048
  2. ENALAPRIL MALEATE W/HYDROCHLOROTHIAZIDE [Suspect]
     Active Substance: ENALAPRIL MALEATE\HYDROCHLOROTHIAZIDE
     Dosage: 1 DF, QD, FOR AT LEAST 20 YEARS UNK
     Dates: start: 20180103
  3. AMLODIPINE [Suspect]
     Active Substance: AMLODIPINE BESYLATE
     Indication: HYPERTENSION
     Dosage: 1 DF, UNK
     Route: 065
  4. ENABETA COMP [Suspect]
     Active Substance: ENALAPRIL MALEATE\HYDROCHLOROTHIAZIDE
     Indication: HYPERTENSION
     Dosage: 1 DOSAGE FORM
     Route: 048
     Dates: start: 20180103
  5. ENABETA COMP [Suspect]
     Active Substance: ENALAPRIL MALEATE\HYDROCHLOROTHIAZIDE
     Dosage: UNK
     Route: 048
  6. ENALAPRIL MALEATE W/HYDROCHLOROTHIAZIDE [Suspect]
     Active Substance: ENALAPRIL MALEATE\HYDROCHLOROTHIAZIDE
     Indication: PRODUCT USED FOR UNKNOWN INDICATION
     Dosage: 1 DF, QD, PRESCRIBED 1/2 TABLET IN THE MORNING AND ALSO 1/2 TABLET IN THE EVENINGS IF BLOOD PRESSURE
     Dates: start: 20180103

REACTIONS (3)
  - Blood pressure decreased [Unknown]
  - Incorrect dose administered [Unknown]
  - Loss of consciousness [Unknown]

NARRATIVE: CASE EVENT DATE: 201712
